FAERS Safety Report 4882290-4 (Version None)
Quarter: 2006Q1

REPORT INFORMATION
  Report Type: 
  Country: None (occurrence: None)
  Receive Date: 20060117
  Receipt Date: 20051004
  Transmission Date: 20060701
  Serious: Yes (Death, Hospitalization, Other)
  Sender: FDA-Public Use
  Company Number: US-MERCK-0510USA02285

PATIENT
  Sex: Male
  Weight: 111 kg

DRUGS (1)
  1. VIOXX [Suspect]
     Indication: ARTHRITIS
     Route: 048
     Dates: end: 20040924

REACTIONS (6)
  - ADVERSE EVENT [None]
  - CEREBROVASCULAR ACCIDENT [None]
  - DEATH [None]
  - DEPRESSION [None]
  - INTESTINAL OBSTRUCTION [None]
  - TRANSIENT ISCHAEMIC ATTACK [None]
